FAERS Safety Report 7438182-X (Version None)
Quarter: 2011Q2

REPORT INFORMATION
  Report Type: 
  Country: None (occurrence: None)
  Receive Date: 20110426
  Receipt Date: 20110418
  Transmission Date: 20111010
  Serious: Yes (Hospitalization, Other)
  Sender: FDA-Public Use
  Company Number: BR-ELI_LILLY_AND_COMPANY-BR201103007483

PATIENT
  Sex: Female
  Weight: 105 kg

DRUGS (6)
  1. DORFLEX [Concomitant]
     Indication: PAIN
     Dosage: UNK, QID
  2. HUMULIN N [Suspect]
     Indication: TYPE 2 DIABETES MELLITUS
     Dosage: 35 IU, EACH MORNING
     Dates: start: 20090101
  3. METFORMIN HCL [Concomitant]
     Dosage: 850 MG, BID
  4. GLYBURIDE [Concomitant]
     Dosage: UNK UNK, QD
     Route: 065
  5. HIDROCLOROTIAZIDA [Concomitant]
     Dosage: 25 MG, BID
  6. ETODOLAC [Concomitant]
     Indication: INTERVERTEBRAL DISC PROTRUSION
     Dosage: 400 MG, UNKNOWN
     Route: 065

REACTIONS (14)
  - DEPRESSION [None]
  - DERMATITIS BULLOUS [None]
  - HYPOGLYCAEMIA [None]
  - FATIGUE [None]
  - ERYSIPELAS [None]
  - BLISTER [None]
  - HYPERGLYCAEMIA [None]
  - INFARCTION [None]
  - INCORRECT STORAGE OF DRUG [None]
  - DIABETES MELLITUS INADEQUATE CONTROL [None]
  - ARTHRALGIA [None]
  - CORONARY ARTERY OCCLUSION [None]
  - YAWNING [None]
  - BACK PAIN [None]
